FAERS Safety Report 20456422 (Version 6)
Quarter: 2022Q1

REPORT INFORMATION
  Report Type: Spontaneous
  Country: US (occurrence: US)
  Receive Date: 20220210
  Receipt Date: 20220322
  Transmission Date: 20220424
  Serious: Yes (Life-Threatening, Hospitalization, Disabling, Other)
  Sender: FDA-Public Use
  Company Number: US-ALLERGAN-2204494US

PATIENT
  Sex: Female
  Weight: 99.773 kg

DRUGS (8)
  1. INFED [Suspect]
     Active Substance: IRON DEXTRAN
     Indication: Iron deficiency
     Dosage: 975 MG, SINGLE
  2. INFED [Suspect]
     Active Substance: IRON DEXTRAN
     Dosage: 1075 MG, SINGLE
     Dates: start: 20160911, end: 20160911
  3. INFED [Suspect]
     Active Substance: IRON DEXTRAN
     Dosage: UNK, SINGLE
     Route: 042
     Dates: start: 20160812, end: 20160812
  4. UNSPECIFIED INGREDIENT [Suspect]
     Active Substance: UNSPECIFIED INGREDIENT
     Indication: Magnetic resonance imaging
     Dosage: UNK
     Dates: start: 201610, end: 201610
  5. UNSPECIFIED INGREDIENT [Concomitant]
     Active Substance: UNSPECIFIED INGREDIENT
  6. FOLIC ACID [Concomitant]
     Active Substance: FOLIC ACID
  7. PREDNISONE [Concomitant]
     Active Substance: PREDNISONE
     Dosage: UNK
     Route: 042
     Dates: start: 20160812
  8. UNSPECIFIED INGREDIENT [Concomitant]
     Active Substance: UNSPECIFIED INGREDIENT

REACTIONS (25)
  - Megacolon [Not Recovered/Not Resolved]
  - Multiple organ dysfunction syndrome [Not Recovered/Not Resolved]
  - Anaphylactic reaction [Recovered/Resolved with Sequelae]
  - Feeling abnormal [Recovered/Resolved]
  - Panic reaction [Recovered/Resolved]
  - Abdominal distension [Not Recovered/Not Resolved]
  - Renal disorder [Not Recovered/Not Resolved]
  - Anxiety [Recovered/Resolved]
  - Fear [Recovered/Resolved]
  - Fatigue [Unknown]
  - Sweat discolouration [Unknown]
  - Vulvovaginal injury [Unknown]
  - Anorectal disorder [Unknown]
  - Magnetic resonance imaging abnormal [Unknown]
  - Wrong technique in product usage process [Unknown]
  - Incorrect dose administered [Unknown]
  - Inappropriate schedule of product administration [Unknown]
  - Expired product administered [Unknown]
  - Heavy menstrual bleeding [Unknown]
  - Exophthalmos [Unknown]
  - Skin discolouration [Unknown]
  - Iron overload [Unknown]
  - Dyspnoea [Unknown]
  - Swelling [Unknown]
  - Hypersensitivity [Unknown]

NARRATIVE: CASE EVENT DATE: 20160101
